FAERS Safety Report 6184488-4 (Version None)
Quarter: 2009Q2

REPORT INFORMATION
  Report Type: 
  Country: None (occurrence: None)
  Receive Date: 20090508
  Receipt Date: 20090420
  Transmission Date: 20091009
  Serious: Yes (Hospitalization, Other)
  Sender: FDA-Public Use
  Company Number: AU-JNJFOC-20090501044

PATIENT
  Age: 6 Decade
  Sex: Female

DRUGS (7)
  1. REMICADE [Suspect]
     Route: 042
  2. REMICADE [Suspect]
     Route: 042
  3. REMICADE [Suspect]
     Route: 042
  4. REMICADE [Suspect]
     Route: 042
  5. REMICADE [Suspect]
     Indication: PSORIATIC ARTHROPATHY
     Route: 042
  6. METHOTREXATE [Concomitant]
  7. UNSPECIFIED CREAMS NOS [Concomitant]

REACTIONS (5)
  - AGITATION [None]
  - EMOTIONAL DISTRESS [None]
  - INFUSION RELATED REACTION [None]
  - LIP SWELLING [None]
  - URTICARIA [None]
